FAERS Safety Report 7164504-3 (Version None)
Quarter: 2010Q4

REPORT INFORMATION
  Report Type: 
  Country: None (occurrence: None)
  Receive Date: 20101123
  Receipt Date: 20100809
  Transmission Date: 20110411
  Serious: No
  Sender: FDA-Public Use
  Company Number: 017004

PATIENT
  Sex: Female
  Weight: 72.6 kg

DRUGS (8)
  1. CIMZIA [Suspect]
     Indication: CROHN'S DISEASE
     Dosage: 400 MG 1X/MONTH SUBCUTANEOUS
     Route: 058
     Dates: start: 20100301
  2. BENTYL [Concomitant]
  3. LOMOTIL /00034001/ [Concomitant]
  4. URECHOLINE [Concomitant]
  5. FLEXERIL [Concomitant]
  6. EFFEXOR [Concomitant]
  7. ZANAFLEX [Concomitant]
  8. LEVSIN [Concomitant]

REACTIONS (4)
  - FATIGUE [None]
  - INFLUENZA LIKE ILLNESS [None]
  - NASOPHARYNGITIS [None]
  - PAIN [None]
